FAERS Safety Report 5616257-5 (Version None)
Quarter: 2008Q1

REPORT INFORMATION
  Report Type: 
  Country: None (occurrence: None)
  Receive Date: 20080204
  Receipt Date: 20080128
  Transmission Date: 20080703
  Serious: Yes (Hospitalization)
  Sender: FDA-Public Use
  Company Number: SPV1-2008-00026

PATIENT
  Sex: Male

DRUGS (1)
  1. VYVANSE [Suspect]

REACTIONS (2)
  - INTENTIONAL DRUG MISUSE [None]
  - MALAISE [None]
